FAERS Safety Report 25679765 (Version 1)
Quarter: 2025Q3

REPORT INFORMATION
  Report Type: Spontaneous
  Country: CN (occurrence: CN)
  Receive Date: 20250814
  Receipt Date: 20250814
  Transmission Date: 20251021
  Serious: Yes (Death, Hospitalization, Other)
  Sender: ABBVIE
  Company Number: CN-PFIZER INC-PV202500093580

PATIENT
  Age: 99 Year
  Sex: Male

DRUGS (2)
  1. AVIBACTAM SODIUM\CEFTAZIDIME [Suspect]
     Active Substance: AVIBACTAM SODIUM\CEFTAZIDIME
     Indication: Pseudomonas infection
     Route: 042
  2. AVIBACTAM SODIUM\CEFTAZIDIME [Suspect]
     Active Substance: AVIBACTAM SODIUM\CEFTAZIDIME
     Indication: Pseudomonas infection
     Route: 042
     Dates: start: 2024

REACTIONS (4)
  - Condition aggravated [Fatal]
  - Drug ineffective [Fatal]
  - Immune system disorder [Fatal]
  - Cutaneous mucormycosis [Fatal]

NARRATIVE: CASE EVENT DATE: 20240101
